FAERS Safety Report 9771685 (Version 1)
Quarter: 2013Q4

REPORT INFORMATION
  Report Type: Spontaneous
  Country: US (occurrence: US)
  Receive Date: 20131219
  Receipt Date: 20131219
  Transmission Date: 20140711
  Serious: No
  Sender: FDA-Public Use
  Company Number: US-BIOGENIDEC-2013BI120754

PATIENT
  Age: 62 Year
  Sex: Male

DRUGS (8)
  1. AVONEX [Suspect]
     Indication: MULTIPLE SCLEROSIS
     Route: 030
     Dates: start: 20110321
  2. AMOXICILLIN [Concomitant]
  3. BACLOFEN [Concomitant]
  4. CVS ARTHRITIS PAIN RELIEF [Concomitant]
  5. FUROSEMIDE [Concomitant]
  6. GLIPIZIDE-METFORMIN HCL [Concomitant]
  7. IBUPROFEN [Concomitant]
  8. KLOR-CON M10 [Concomitant]

REACTIONS (2)
  - Influenza [Unknown]
  - Dizziness [Unknown]
